FAERS Safety Report 8093530-5 (Version None)
Quarter: 2012Q1

REPORT INFORMATION
  Report Type: 
  Country: None (occurrence: None)
  Receive Date: 20120129
  Receipt Date: 20111021
  Transmission Date: 20120608
  Serious: No
  Sender: FDA-Public Use
  Company Number: US-ABBOTT-11P-163-0867165-00

PATIENT
  Age: 47 Year
  Sex: Male

DRUGS (9)
  1. HUMIRA [Suspect]
     Indication: CROHN'S DISEASE
     Dosage: LOADING DOSE
     Dates: start: 20111007, end: 20111007
  2. PREDNISONE TAB [Concomitant]
     Indication: CROHN'S DISEASE
  3. HUMIRA [Suspect]
  4. CHOLESTYRAMINE [Concomitant]
     Indication: CROHN'S DISEASE
     Dosage: 1 PACKET DAILY
  5. PENTASA [Concomitant]
     Indication: CROHN'S DISEASE
  6. XIFAXAN [Concomitant]
     Indication: CROHN'S DISEASE
  7. MULTI-VITAMINS [Concomitant]
     Indication: PRODUCT USED FOR UNKNOWN INDICATION
  8. VITAMIN D [Concomitant]
     Indication: PRODUCT USED FOR UNKNOWN INDICATION
  9. CALCIUM [Concomitant]
     Indication: PRODUCT USED FOR UNKNOWN INDICATION

REACTIONS (1)
  - INJECTION SITE HAEMATOMA [None]
